FAERS Safety Report 7257659-3 (Version None)
Quarter: 2011Q1

REPORT INFORMATION
  Report Type: 
  Country: None (occurrence: None)
  Receive Date: 20110129
  Receipt Date: 20100503
  Transmission Date: 20110831
  Serious: Yes (Other)
  Sender: FDA-Public Use
  Company Number: US-ABBOTT-10P-163-0642154-00

PATIENT
  Sex: Male
  Weight: 92.616 kg

DRUGS (5)
  1. HUMIRA [Suspect]
     Indication: PSORIASIS
  2. HUMIRA [Suspect]
     Indication: PSORIATIC ARTHROPATHY
  3. METFORMIN [Concomitant]
     Indication: DIABETES MELLITUS
  4. HUMIRA [Suspect]
     Indication: RHEUMATOID ARTHRITIS
  5. GLYBURIDE [Concomitant]
     Indication: DIABETES MELLITUS

REACTIONS (1)
  - SQUAMOUS CELL CARCINOMA [None]
